FAERS Safety Report 10027194 (Version 2)
Quarter: 2014Q2

REPORT INFORMATION
  Report Type: Spontaneous
  Country: JP (occurrence: JP)
  Receive Date: 20140321
  Receipt Date: 20140404
  Transmission Date: 20141212
  Serious: Yes (Other)
  Sender: FDA-Public Use
  Company Number: JP-ROCHE-1366484

PATIENT
  Age: 58 Year
  Sex: Male
  Weight: 60 kg

DRUGS (17)
  1. AVASTIN [Suspect]
     Indication: COLON CANCER RECURRENT
     Route: 041
     Dates: start: 20111006, end: 20130529
  2. AVASTIN [Suspect]
     Indication: COLON CANCER RECURRENT
     Route: 041
     Dates: start: 20130703, end: 20131127
  3. AVASTIN [Suspect]
     Indication: COLON CANCER RECURRENT
     Route: 041
     Dates: start: 20140108, end: 20140122
  4. ZOMETA [Suspect]
     Indication: METASTASES TO BONE
     Route: 041
     Dates: start: 20111007, end: 20130925
  5. TS-1 [Concomitant]
     Indication: COLON CANCER RECURRENT
     Route: 048
     Dates: start: 20111006
  6. TOPOTECIN [Concomitant]
     Indication: COLON CANCER RECURRENT
     Route: 041
     Dates: start: 20111006
  7. DECADRON [Concomitant]
     Indication: PROPHYLAXIS OF NAUSEA AND VOMITING
     Route: 048
     Dates: start: 20111007, end: 20120611
  8. DECADRON [Concomitant]
     Indication: PROPHYLAXIS OF NAUSEA AND VOMITING
     Route: 048
     Dates: start: 20120709
  9. DEXART [Concomitant]
     Indication: PROPHYLAXIS OF NAUSEA AND VOMITING
     Route: 041
     Dates: start: 20111006, end: 20120626
  10. DEXART [Concomitant]
     Indication: PROPHYLAXIS OF NAUSEA AND VOMITING
     Route: 041
     Dates: start: 20120807
  11. URSO [Concomitant]
     Dosage: DOSAGE IS UNCERTAIN.
     Route: 048
  12. CELECOX [Concomitant]
     Dosage: DOSAGE IS UNCERTAIN.
     Route: 048
  13. SEROTONE [Concomitant]
     Dosage: DOSAGE IS UNCERTAIN.
     Route: 048
  14. SODIUM BICARBONATE [Concomitant]
     Dosage: DOSAGE IS UNCERTAIN.
     Route: 065
  15. TRYPTANOL [Concomitant]
     Dosage: DOSAGE IS UNCERTAIN.
     Route: 065
  16. RABEPRAZOLE SODIUM [Concomitant]
     Dosage: DOSAGE IS UNCERTAIN.
     Route: 048
  17. LENDORMIN D [Concomitant]
     Dosage: DOSAGE IS UNCERTAIN.
     Route: 048

REACTIONS (1)
  - Osteomyelitis [Not Recovered/Not Resolved]
